FAERS Safety Report 5850901-2 (Version None)
Quarter: 2008Q3

REPORT INFORMATION
  Report Type: 
  Country: None (occurrence: None)
  Receive Date: 20080820
  Receipt Date: 20080812
  Transmission Date: 20090109
  Serious: Yes (Other)
  Sender: FDA-Public Use
  Company Number: US-JNJFOC-20080803009

PATIENT
  Age: 73 Year
  Sex: Female
  Weight: 52.16 kg

DRUGS (4)
  1. TYLENOL (CAPLET) [Suspect]
     Indication: BACK PAIN
     Route: 048
  2. TYLENOL (CAPLET) [Suspect]
     Indication: ARTHRITIS
     Dosage: 650 MG, 1-2 TIMES A DAY
     Route: 048
  3. ACIPHEX [Concomitant]
     Indication: GASTROOESOPHAGEAL REFLUX DISEASE
     Dosage: ONE PILL DAILY
  4. XANAX [Concomitant]
     Indication: ANXIETY
     Dosage: 2 PILLS AS NEEDED

REACTIONS (1)
  - EYE HAEMORRHAGE [None]
